FAERS Safety Report 4450694-X (Version None)
Quarter: 2004Q3

REPORT INFORMATION
  Report Type: 
  Country: None (occurrence: None)
  Receive Date: 20040915
  Receipt Date: 20040915
  Transmission Date: 20050211
  Serious: Yes (Hospitalization)
  Sender: FDA-Public Use
  Company Number: None

PATIENT
  Age: 46 Year
  Sex: Male
  Weight: 95.2554 kg

DRUGS (1)
  1. INDOMETHACIN [Suspect]
     Indication: GOUT
     Dosage: 50 MG TID PO
     Route: 048

REACTIONS (7)
  - ASTHENIA [None]
  - COUGH [None]
  - DIARRHOEA [None]
  - GASTRIC ULCER [None]
  - HYPERHIDROSIS [None]
  - NAUSEA [None]
  - RECTAL HAEMORRHAGE [None]
